FAERS Safety Report 9425627 (Version 1)
Quarter: 2013Q3

REPORT INFORMATION
  Report Type: Spontaneous
  Country: US (occurrence: US)
  Receive Date: 20130729
  Receipt Date: 20130729
  Transmission Date: 20140515
  Serious: Yes (Other)
  Sender: FDA-Public Use
  Company Number: US-MPIJNJ-2013-05738

PATIENT
  Sex: 0

DRUGS (8)
  1. VELCADE [Suspect]
     Indication: PLASMA CELL MYELOMA
     Dosage: UNK
     Route: 065
  2. THALIDOMIDE [Suspect]
     Indication: PLASMA CELL MYELOMA
     Dosage: 200 MG, UNK
     Route: 065
  3. DEXAMETHASONE [Suspect]
     Indication: PLASMA CELL MYELOMA
     Route: 065
  4. DOXORUBICIN [Suspect]
     Indication: PLASMA CELL MYELOMA
     Dosage: UNK, QD
     Route: 041
  5. CISPLATIN [Suspect]
     Indication: PLASMA CELL MYELOMA
     Route: 041
  6. FLUCONAZOLE [Concomitant]
     Indication: INFECTION PROPHYLAXIS
     Dosage: 200 MG, UNK
     Route: 048
  7. LEVOFLOXACIN [Concomitant]
     Indication: INFECTION PROPHYLAXIS
     Dosage: 500 MG, UNK
     Route: 048
  8. ACYCLOVIR                          /00587301/ [Concomitant]
     Indication: INFECTION PROPHYLAXIS
     Dosage: 400 MG, BID
     Route: 048

REACTIONS (1)
  - Troponin I increased [Unknown]
